FAERS Safety Report 6616377-2 (Version None)
Quarter: 2010Q1

REPORT INFORMATION
  Report Type: 
  Country: None (occurrence: None)
  Receive Date: 20100305
  Receipt Date: 20100225
  Transmission Date: 20100710
  Serious: Yes (Other)
  Sender: FDA-Public Use
  Company Number: US-JNJFOC-20100300173

PATIENT
  Sex: Female

DRUGS (2)
  1. TOPIRAMATE [Suspect]
     Indication: WEIGHT LOSS DIET
     Route: 048
  2. ANTIDEPRESSANT THERAPY [Interacting]
     Indication: ANTIDEPRESSANT THERAPY
     Route: 065

REACTIONS (3)
  - DRUG INTERACTION [None]
  - SEROTONIN SYNDROME [None]
  - TREATMENT NONCOMPLIANCE [None]
